FAERS Safety Report 12523806 (Version 1)
Quarter: 2016Q3

REPORT INFORMATION
  Report Type: Spontaneous
  Country: GB (occurrence: GB)
  Receive Date: 20160704
  Receipt Date: 20160704
  Transmission Date: 20161109
  Serious: Yes (Other)
  Sender: FDA-Public Use
  Company Number: GB-AXELLIA-000948

PATIENT
  Age: 2 Year
  Sex: Female

DRUGS (1)
  1. VANCOMYCIN [Suspect]
     Active Substance: VANCOMYCIN
     Indication: PYREXIA
     Dosage: RECEIVED 150 MG ON 22 TO 23-DEC-2015, THAN DOSE INCREASED TO 250 MG ON 23 TO 24-DEC-2015.
     Route: 042
     Dates: start: 20151225, end: 20151226

REACTIONS (2)
  - Renal impairment [Not Recovered/Not Resolved]
  - Hyperkalaemia [Unknown]

NARRATIVE: CASE EVENT DATE: 20151226
